FAERS Safety Report 7213777-7 (Version None)
Quarter: 2011Q1

REPORT INFORMATION
  Report Type: 
  Country: None (occurrence: None)
  Receive Date: 20110106
  Receipt Date: 20101228
  Transmission Date: 20110831
  Serious: Yes (Death, Other)
  Sender: FDA-Public Use
  Company Number: GB-ABBOTT-10P-167-0694321-00

PATIENT
  Age: 46 Year
  Sex: Female

DRUGS (3)
  1. CITALOPRAM [Concomitant]
     Indication: PRODUCT USED FOR UNKNOWN INDICATION
  2. CLOZARIL [Suspect]
     Indication: SCHIZOPHRENIA
     Route: 048
     Dates: start: 20081104
  3. EPILIM TABLETS [Suspect]
     Indication: EPILEPSY

REACTIONS (8)
  - DEATH [None]
  - BACK PAIN [None]
  - CONVULSION [None]
  - SYNCOPE [None]
  - DYSPNOEA [None]
  - CONFUSIONAL STATE [None]
  - OBESITY [None]
  - CYANOSIS [None]
